FAERS Safety Report 7943728-9 (Version None)
Quarter: 2011Q4

REPORT INFORMATION
  Report Type: 
  Country: None (occurrence: None)
  Receive Date: 20111128
  Receipt Date: 20111123
  Transmission Date: 20120403
  Serious: Yes (Death, Other)
  Sender: FDA-Public Use
  Company Number: JP-ABBOTT-11P-087-0841747-00

PATIENT
  Sex: Female
  Weight: 57 kg

DRUGS (19)
  1. ROSUVASTATIN CALCIUM [Suspect]
     Indication: PRODUCT USED FOR UNKNOWN INDICATION
     Dates: start: 20091020, end: 20110511
  2. HYDROCHLORIDE [Concomitant]
     Indication: INSOMNIA
     Dates: start: 20091020
  3. CLOTIAZEPAM [Suspect]
     Indication: INSOMNIA
     Dates: start: 20091020, end: 20110511
  4. ISONIAZID [Concomitant]
     Indication: ANTIBIOTIC PROPHYLAXIS
     Route: 048
     Dates: start: 20091020
  5. MELOXICAM [Concomitant]
     Indication: RHEUMATOID ARTHRITIS
     Route: 048
     Dates: start: 20091020
  6. OMEPRAZOLE [Concomitant]
     Indication: PRODUCT USED FOR UNKNOWN INDICATION
     Route: 048
     Dates: start: 20091020
  7. RISPERIDONE [Suspect]
     Indication: INSOMNIA
     Dates: start: 20091020, end: 20110511
  8. CALCIUM [Concomitant]
     Indication: HYPERLIPIDAEMIA
     Route: 048
     Dates: start: 20091020
  9. ATENOLOL [Concomitant]
     Indication: PRODUCT USED FOR UNKNOWN INDICATION
     Dates: start: 20091020
  10. FLUNITRAZEPAM [Suspect]
     Indication: INSOMNIA
     Dates: start: 20091020, end: 20110511
  11. AMOBARBITAL SODIUM [Suspect]
     Indication: INSOMNIA
     Dates: start: 20091020, end: 20110511
  12. HUMIRA [Suspect]
     Indication: RHEUMATOID ARTHRITIS
     Route: 058
     Dates: start: 20090501, end: 20110506
  13. CHLORPROMAZINE HCL [Suspect]
     Indication: INSOMNIA
     Route: 048
     Dates: start: 20091020, end: 20100511
  14. PREDNISOLONE [Concomitant]
     Indication: RHEUMATOID ARTHRITIS
     Route: 048
     Dates: start: 20091020
  15. LORATADINE [Concomitant]
     Indication: PRODUCT USED FOR UNKNOWN INDICATION
     Route: 048
     Dates: start: 20091020
  16. BROMOVALERYLUREA [Suspect]
     Indication: INSOMNIA
     Dates: start: 20091020, end: 20110511
  17. MAPROTILINE HYDROCHLORIDE [Suspect]
     Indication: PRODUCT USED FOR UNKNOWN INDICATION
     Dates: start: 20091020, end: 20110511
  18. METHOTREXATE [Concomitant]
     Indication: RHEUMATOID ARTHRITIS
     Route: 048
     Dates: start: 20091020, end: 20110511
  19. MOSAPRIDE CITRATE HYDRATE [Concomitant]
     Indication: PRODUCT USED FOR UNKNOWN INDICATION
     Route: 048
     Dates: start: 20091020

REACTIONS (10)
  - HYPOXIA [None]
  - MYOGLOBINURIA [None]
  - MYALGIA [None]
  - PNEUMONIA [None]
  - RESPIRATORY FAILURE [None]
  - MALAISE [None]
  - DEHYDRATION [None]
  - NEUROLEPTIC MALIGNANT SYNDROME [None]
  - ACUTE RESPIRATORY DISTRESS SYNDROME [None]
  - RESPIRATORY DISORDER [None]
